FAERS Safety Report 7747437-0 (Version None)
Quarter: 2011Q3

REPORT INFORMATION
  Report Type: 
  Country: None (occurrence: None)
  Receive Date: 20110913
  Receipt Date: 20110908
  Transmission Date: 20111222
  Serious: Yes (Hospitalization, Other)
  Sender: FDA-Public Use
  Company Number: US-GLAXOSMITHKLINE-Z0004783A

PATIENT
  Age: 50 Year
  Sex: Female
  Weight: 86.6 kg

DRUGS (11)
  1. ALBUTEROL SULFATE [Concomitant]
     Indication: DYSPNOEA
     Dosage: 2PUFF AS REQUIRED
     Route: 055
     Dates: start: 20100701, end: 20100703
  2. HEPARIN SODIUM [Concomitant]
     Indication: THROMBOSIS PROPHYLAXIS
     Dosage: 5000UNIT AS REQUIRED
     Route: 058
     Dates: start: 20100630, end: 20100701
  3. FLUTICASONE PROPIONATE [Concomitant]
     Indication: DYSPNOEA
     Dosage: 2PUFF AS REQUIRED
     Route: 045
     Dates: start: 20100702, end: 20100704
  4. EPINEPHRINE [Concomitant]
     Indication: DYSPNOEA
     Dosage: .3MG SINGLE DOSE
     Route: 030
     Dates: start: 20100702, end: 20100702
  5. FAMOTIDINE [Concomitant]
     Indication: NAUSEA
     Dosage: 20MG AS REQUIRED
     Route: 042
     Dates: start: 20100630, end: 20100704
  6. CYCLOBENZAPRINE HCL [Concomitant]
     Indication: MUSCLE SPASMS
     Dosage: 10MG SINGLE DOSE
     Route: 048
     Dates: start: 20100703, end: 20100703
  7. IPRATROPIUM BROMIDE [Concomitant]
     Dosage: 2PUFF AS REQUIRED
     Route: 055
     Dates: start: 20100702, end: 20100704
  8. OXYCODONE HCL [Concomitant]
     Indication: PAIN
     Dosage: 2TAB SINGLE DOSE
     Route: 048
     Dates: start: 20100702, end: 20100702
  9. IPRATROPIUM BROMIDE [Concomitant]
     Indication: DYSPNOEA
     Dosage: 1PUFF SINGLE DOSE
     Route: 055
     Dates: start: 20100701, end: 20100701
  10. PAZOPANIB [Suspect]
     Indication: OVARIAN CANCER
     Dosage: 800MG PER DAY
     Route: 048
     Dates: start: 20100615
  11. INSULIN [Concomitant]
     Indication: HYPERGLYCAEMIA
     Dosage: 5UNIT AS REQUIRED
     Route: 058
     Dates: start: 20100630, end: 20100630

REACTIONS (2)
  - LIVER FUNCTION TEST ABNORMAL [None]
  - PYREXIA [None]
